FAERS Safety Report 13684951 (Version 1)
Quarter: 2017Q2

REPORT INFORMATION
  Report Type: Spontaneous
  Country: US (occurrence: US)
  Receive Date: 20170623
  Receipt Date: 20170623
  Transmission Date: 20170830
  Serious: No
  Sender: FDA-Public Use
  Company Number: US-LUNDBECK-DKLU2032805

PATIENT
  Age: 39 Year
  Sex: Male

DRUGS (2)
  1. NORTHERA [Suspect]
     Active Substance: DROXIDOPA
     Indication: AUTONOMIC NEUROPATHY
     Dosage: SCHEDULE A TITRATION COMPLETE
     Route: 048
     Dates: start: 20170518, end: 20170611
  2. NORTHERA [Suspect]
     Active Substance: DROXIDOPA
     Indication: DIZZINESS

REACTIONS (3)
  - Fall [Unknown]
  - Muscular weakness [Unknown]
  - Vision blurred [Unknown]

NARRATIVE: CASE EVENT DATE: 20170611
